FAERS Safety Report 21416599 (Version 1)
Quarter: 2022Q4

REPORT INFORMATION
  Report Type: Spontaneous
  Country: FR (occurrence: None)
  Receive Date: 20221006
  Receipt Date: 20221006
  Transmission Date: 20230113
  Serious: Yes (Other)
  Sender: FDA-Public Use
  Company Number: 2022A331666

PATIENT
  Age: 58 Year
  Sex: Male
  Weight: 67 kg

DRUGS (6)
  1. IMFINZI [Suspect]
     Active Substance: DURVALUMAB
     Indication: Small cell lung cancer
     Dosage: 2 CURES, 1500 MG EVERY CYCLE
     Route: 042
     Dates: start: 20220801, end: 20220822
  2. ONDANSETRON [Suspect]
     Active Substance: ONDANSETRON
     Indication: Prophylaxis of nausea and vomiting
     Dosage: 2 CURES, 8 MG EVERY CYCLE
     Route: 065
     Dates: start: 20220801, end: 20220822
  3. CISPLATIN [Suspect]
     Active Substance: CISPLATIN
     Indication: Small cell lung cancer
     Dosage: 2 CURES, 147.2 MG EVERY CYCLE
     Route: 065
     Dates: start: 20220801, end: 20220822
  4. METHYLPREDNISOLONE [Suspect]
     Active Substance: METHYLPREDNISOLONE
     Indication: Product used for unknown indication
     Dosage: 2 CURES, 120 MG EVERY CYCLE
     Route: 065
     Dates: start: 20220801, end: 20220822
  5. ETOPOSIDE [Suspect]
     Active Substance: ETOPOSIDE
     Indication: Small cell lung cancer
     Dosage: 2 CURES, 441 MG EVERY CYCLE
     Route: 065
     Dates: start: 20220801, end: 20220824
  6. EMEND [Suspect]
     Active Substance: APREPITANT
     Indication: Prophylaxis of nausea and vomiting
     Dosage: 2 CURES, 285 MG EVERY CYCLE
     Route: 065
     Dates: start: 20220801, end: 20220824

REACTIONS (1)
  - Central serous chorioretinopathy [Not Recovered/Not Resolved]

NARRATIVE: CASE EVENT DATE: 20220801
